FAERS Safety Report 9781381 (Version 3)
Quarter: 2014Q1

REPORT INFORMATION
  Report Type: Spontaneous
  Country: US (occurrence: US)
  Receive Date: 20131224
  Receipt Date: 20140130
  Transmission Date: 20141002
  Serious: Yes (Hospitalization, Other)
  Sender: FDA-Public Use
  Company Number: US-ASTRAZENECA-2012SE09543

PATIENT
  Age: 46 Year
  Sex: Female
  Weight: 108.9 kg

DRUGS (15)
  1. SEROQUEL XR [Suspect]
     Indication: MAJOR DEPRESSION
     Route: 048
     Dates: start: 200607, end: 20131211
  2. SEROQUEL XR [Suspect]
     Indication: INSOMNIA
     Route: 048
     Dates: start: 200607, end: 20131211
  3. SEROQUEL XR [Suspect]
     Indication: MAJOR DEPRESSION
     Route: 048
  4. SEROQUEL XR [Suspect]
     Indication: INSOMNIA
     Route: 048
  5. LISINOPRIL [Suspect]
     Indication: RENAL DISORDER
     Route: 048
     Dates: start: 2013
  6. VITAMIN D [Concomitant]
     Dosage: 1 DAILY
  7. WOMANS MULTIVITAMIN [Concomitant]
  8. IBUPROFEN [Concomitant]
     Indication: PLANTAR FASCIITIS
     Dosage: 2 X 800MG DAILY
  9. IBUPROFEN [Concomitant]
     Indication: OSTEOARTHRITIS
     Dosage: 2 X 800MG DAILY
  10. METFORMIN [Concomitant]
  11. NOVALOG [Concomitant]
     Dosage: SLIDING SCALE 70 30
  12. WELLBUTRIN [Concomitant]
     Indication: MAJOR DEPRESSION
     Dates: start: 200607
  13. MALOXICAM [Concomitant]
     Indication: LIMB DISCOMFORT
     Dates: start: 2013
  14. FENOFIBRATE [Concomitant]
     Indication: BLOOD TRIGLYCERIDES ABNORMAL
     Dates: start: 2007
  15. ZITHROMAX [Concomitant]
     Indication: TOOTH DISORDER

REACTIONS (21)
  - White blood cell count increased [Recovered/Resolved]
  - Cellulitis [Recovered/Resolved]
  - Ear pain [Recovered/Resolved]
  - Abscess [Recovered/Resolved]
  - Swelling face [Recovered/Resolved]
  - Toothache [Recovered/Resolved]
  - Aphagia [Recovered/Resolved]
  - Mastication disorder [Recovered/Resolved]
  - Diarrhoea [Recovered/Resolved]
  - Nausea [Recovered/Resolved]
  - Plantar fasciitis [Unknown]
  - Osteoarthritis [Unknown]
  - Osteoarthritis [Not Recovered/Not Resolved]
  - Insomnia [Unknown]
  - Weight decreased [Unknown]
  - Malaise [Unknown]
  - Tooth abscess [Recovered/Resolved]
  - Dysphagia [Recovered/Resolved]
  - Dizziness [Recovered/Resolved]
  - Off label use [Unknown]
  - Drug dose omission [Not Recovered/Not Resolved]
